FAERS Safety Report 5930627-7 (Version None)
Quarter: 2008Q4

REPORT INFORMATION
  Report Type: 
  Country: None (occurrence: None)
  Receive Date: 20081027
  Receipt Date: 20081015
  Transmission Date: 20090506
  Serious: Yes (Death, Hospitalization)
  Sender: FDA-Public Use
  Company Number: FR-JNJFOC-20081003637

PATIENT
  Age: 83 Year
  Sex: Male

DRUGS (3)
  1. TAVANIC [Suspect]
     Indication: LEGIONELLA INFECTION
     Route: 042
  2. ERYTHROMYCIN [Suspect]
     Indication: SEPTIC SHOCK
     Route: 042
  3. HYDROCORTISONE [Suspect]
     Indication: SEPTIC SHOCK
     Route: 042

REACTIONS (4)
  - DEATH [None]
  - SEPTIC SHOCK [None]
  - VENTRICULAR FIBRILLATION [None]
  - VENTRICULAR TACHYCARDIA [None]
